FAERS Safety Report 5004387-0 (Version None)
Quarter: 2006Q2

REPORT INFORMATION
  Report Type: 
  Country: None (occurrence: None)
  Receive Date: 20060511
  Receipt Date: 20060427
  Transmission Date: 20061013
  Serious: Yes (Other)
  Sender: FDA-Public Use
  Company Number: 2006000923

PATIENT
  Age: 64 Year
  Sex: Male

DRUGS (9)
  1. TARCEVA [Suspect]
     Indication: LUNG NEOPLASM MALIGNANT
     Dosage: 150 MG (QD), ORAL
     Route: 048
  2. NEXIUM [Concomitant]
  3. FLOMAX (MORNIFLUMATE) [Concomitant]
  4. PERCOCET [Concomitant]
  5. GLYBURIDE [Concomitant]
  6. TETRACYCLINE [Concomitant]
  7. PROSCAR [Concomitant]
  8. RANITIDINE [Concomitant]
  9. SAW PALMETTO (SERENOA REPENS) [Concomitant]

REACTIONS (1)
  - VITREOUS DETACHMENT [None]
